FAERS Safety Report 24848212 (Version 5)
Quarter: 2025Q1

REPORT INFORMATION
  Report Type: Spontaneous
  Country: KR (occurrence: KR)
  Receive Date: 20250116
  Receipt Date: 20250304
  Transmission Date: 20250409
  Serious: Yes (Life-Threatening, Hospitalization, Other)
  Sender: CELLTRION
  Company Number: KR-CELLTRION INC.-2025KR001222

PATIENT

DRUGS (14)
  1. RITUXIMAB [Suspect]
     Active Substance: RITUXIMAB
     Indication: Central nervous system lymphoma
     Dates: start: 20241231, end: 20241231
  2. RITUXIMAB [Suspect]
     Active Substance: RITUXIMAB
  3. RITUXIMAB [Suspect]
     Active Substance: RITUXIMAB
  4. RITUXIMAB [Suspect]
     Active Substance: RITUXIMAB
  5. RITUXIMAB [Suspect]
     Active Substance: RITUXIMAB
     Dates: start: 20250204, end: 20250204
  6. RITUXIMAB [Suspect]
     Active Substance: RITUXIMAB
     Dates: start: 20250225, end: 20250225
  7. ZANUBRUTINIB [Suspect]
     Active Substance: ZANUBRUTINIB
     Indication: Central nervous system lymphoma
     Dates: start: 20250101, end: 20250107
  8. ZANUBRUTINIB [Suspect]
     Active Substance: ZANUBRUTINIB
     Dates: start: 20250204, end: 20250216
  9. ZANUBRUTINIB [Suspect]
     Active Substance: ZANUBRUTINIB
     Dates: start: 20250225
  10. CARBOPLATIN\ETOPOSIDE\IFOSFAMIDE [Suspect]
     Active Substance: CARBOPLATIN\ETOPOSIDE\IFOSFAMIDE
     Indication: Central nervous system lymphoma
     Dates: start: 20250101, end: 20250103
  11. CARBOPLATIN\ETOPOSIDE\IFOSFAMIDE [Suspect]
     Active Substance: CARBOPLATIN\ETOPOSIDE\IFOSFAMIDE
     Dates: start: 20250204, end: 20250206
  12. CARBOPLATIN\ETOPOSIDE\IFOSFAMIDE [Suspect]
     Active Substance: CARBOPLATIN\ETOPOSIDE\IFOSFAMIDE
     Dates: start: 20250225, end: 20250227
  13. PEGFILGRASTIM [Suspect]
     Active Substance: PEGFILGRASTIM
     Indication: Product used for unknown indication
     Dates: start: 20250104, end: 20250104
  14. PEGFILGRASTIM [Suspect]
     Active Substance: PEGFILGRASTIM
     Dates: start: 20250207, end: 20250207

REACTIONS (3)
  - Platelet count decreased [Recovering/Resolving]
  - Neutrophil count decreased [Recovered/Resolved]
  - Platelet count decreased [Recovered/Resolved]

NARRATIVE: CASE EVENT DATE: 20250108
